FAERS Safety Report 23758737 (Version 1)
Quarter: 2024Q2

REPORT INFORMATION
  Report Type: Other
  Country: US (occurrence: None)
  Receive Date: 20240418
  Receipt Date: 20240418
  Transmission Date: 20240716
  Serious: No
  Sender: FDA-Public Use
  Company Number: US-ROCHE-3492692

PATIENT
  Sex: Female

DRUGS (8)
  1. BEVACIZUMAB [Suspect]
     Active Substance: BEVACIZUMAB
     Indication: Non-small cell lung cancer
     Route: 065
  2. CARBOPLATIN [Concomitant]
     Active Substance: CARBOPLATIN
  3. DOCETAXEL [Concomitant]
     Active Substance: DOCETAXEL\DOCETAXEL ANHYDROUS
  4. ERLOTINIB [Concomitant]
     Active Substance: ERLOTINIB
     Route: 048
  5. IBRUTINIB [Concomitant]
     Active Substance: IBRUTINIB
  6. ZANUBRUTINIB [Concomitant]
     Active Substance: ZANUBRUTINIB
  7. LENALIDOMIDE [Concomitant]
     Active Substance: LENALIDOMIDE
  8. RITUXIMAB [Concomitant]
     Active Substance: RITUXIMAB
     Route: 065

REACTIONS (1)
  - Proteinuria [Unknown]
